FAERS Safety Report 8613320-1 (Version None)
Quarter: 2012Q3

REPORT INFORMATION
  Report Type: 
  Country: None (occurrence: None)
  Receive Date: 20120822
  Receipt Date: 20120730
  Transmission Date: 20120928
  Serious: Yes (Death, Hospitalization)
  Sender: FDA-Public Use
  Company Number: JP-009507513-2012SP020113

PATIENT

DRUGS (18)
  1. ASPIRIN [Concomitant]
     Indication: PRODUCT USED FOR UNKNOWN INDICATION
     Dosage: UNK
     Route: 048
  2. FAMOTIDINE [Concomitant]
     Indication: PROPHYLAXIS
  3. DEPAKENE [Concomitant]
     Indication: BRAIN NEOPLASM
  4. FAMOTIDINE [Concomitant]
     Dosage: DAILY DOSAGE UNKNOWN
     Route: 048
  5. TICLOPIDINE HCL [Concomitant]
     Indication: PRODUCT USED FOR UNKNOWN INDICATION
     Dosage: UNK
     Route: 048
  6. TEMODAL [Suspect]
     Route: 041
     Dates: start: 20110301, end: 20110302
  7. ALLOPURINOL [Concomitant]
     Indication: PRODUCT USED FOR UNKNOWN INDICATION
     Dosage: UNK
     Route: 048
  8. BETAMETHASONE [Concomitant]
     Indication: PRODUCT USED FOR UNKNOWN INDICATION
  9. RAMELTEON [Concomitant]
     Indication: PROPHYLAXIS
     Dosage: UNK
     Route: 048
     Dates: start: 20110221, end: 20110225
  10. TEMODAL [Suspect]
     Indication: MIXED OLIGO-ASTROCYTOMA
     Dosage: 200 MG/M2, QD
     Route: 041
     Dates: start: 20110221, end: 20110225
  11. TEMODAL [Suspect]
     Route: 041
     Dates: start: 20110221, end: 20110223
  12. DEPAKENE [Concomitant]
     Dosage: DAILY DOSAGE UNKNOWN
     Route: 048
  13. TEMODAL [Suspect]
     Indication: ANAPLASTIC ASTROCYTOMA
     Dosage: DAILY DOSAGE UNKNOWN
     Route: 048
     Dates: start: 20070117, end: 20091222
  14. SOLACET D [Concomitant]
     Dosage: UNK
     Route: 041
     Dates: start: 20110224, end: 20110224
  15. VEEN 3G [Concomitant]
     Dosage: DAILY DOSAGE UNKNOWN
     Route: 041
     Dates: start: 20110224, end: 20110228
  16. BETAMETHASONE [Concomitant]
     Dosage: DAILY DOSAGE UNKNOWN
     Route: 048
  17. RAMELTEON [Concomitant]
     Indication: PRODUCT USED FOR UNKNOWN INDICATION
     Route: 048
     Dates: start: 20110221, end: 20110225
  18. LIPITOR [Concomitant]
     Indication: PRODUCT USED FOR UNKNOWN INDICATION
     Dosage: UNK
     Route: 048

REACTIONS (3)
  - C-REACTIVE PROTEIN INCREASED [None]
  - DISEASE PROGRESSION [None]
  - PYREXIA [None]
